FAERS Safety Report 7644758-7 (Version None)
Quarter: 2011Q3

REPORT INFORMATION
  Report Type: 
  Country: None (occurrence: None)
  Receive Date: 20110729
  Receipt Date: 20110727
  Transmission Date: 20111222
  Serious: Yes (Hospitalization)
  Sender: FDA-Public Use
  Company Number: US-SANOFI-AVENTIS-2011SA038385

PATIENT
  Age: 54 Year
  Sex: Male
  Weight: 90.9 kg

DRUGS (15)
  1. MULTAQ [Suspect]
     Indication: TACHYCARDIA
     Route: 048
     Dates: start: 20110605
  2. MULTAQ [Suspect]
     Indication: ATRIAL FIBRILLATION
     Route: 048
     Dates: start: 20110605
  3. AMIODARONE HCL [Concomitant]
     Dates: start: 20110513, end: 20110602
  4. EFFIENT [Concomitant]
  5. MULTAQ [Suspect]
     Route: 048
     Dates: start: 20110610, end: 20110614
  6. MULTAQ [Suspect]
     Route: 048
     Dates: start: 20110610, end: 20110614
  7. SIMVASTATIN [Concomitant]
  8. LOSARTAN POTASSIUM [Concomitant]
     Indication: HYPERTENSION
  9. PROPECIA [Concomitant]
     Indication: HAIR TRANSPLANT
  10. AMLODIPINE BESYLATE [Concomitant]
     Indication: TACHYCARDIA
     Dates: start: 20110603, end: 20110605
  11. AMIODARONE HCL [Concomitant]
     Dates: start: 20110601
  12. AMIODARONE HCL [Concomitant]
     Indication: TACHYCARDIA
     Dates: start: 20110427, end: 20110504
  13. AMIODARONE HCL [Concomitant]
     Dates: start: 20110505, end: 20110512
  14. ASPIRIN [Concomitant]
  15. NADOLOL [Concomitant]

REACTIONS (5)
  - UNDERDOSE [None]
  - BRADYCARDIA [None]
  - CHEST DISCOMFORT [None]
  - ATRIAL FIBRILLATION [None]
  - OFF LABEL USE [None]
